FAERS Safety Report 5210639-1 (Version None)
Quarter: 2006Q4

REPORT INFORMATION
  Report Type: 
  Country: None (occurrence: None)
  Receive Date: 20061106
  Receipt Date: 20060821
  Transmission Date: 20070319
  Serious: No
  Sender: FDA-Public Use
  Company Number: VNL_0188_2006

PATIENT
  Age: 59 Year
  Sex: Male
  Weight: 108.8633 kg

DRUGS (4)
  1. APOKYN [Suspect]
     Indication: PARKINSON'S DISEASE
     Dosage: DF VARIABLE SC
     Route: 058
     Dates: start: 20060810
  2. MIRAPAX [Concomitant]
  3. COMTAN [Concomitant]
  4. LEVODOPA [Concomitant]

REACTIONS (1)
  - HYPOAESTHESIA [None]
